FAERS Safety Report 7468525-2 (Version None)
Quarter: 2011Q2

REPORT INFORMATION
  Report Type: 
  Country: None (occurrence: None)
  Receive Date: 20110509
  Receipt Date: 20110503
  Transmission Date: 20111010
  Serious: Yes (Other)
  Sender: FDA-Public Use
  Company Number: US-RB-023654-11

PATIENT
  Age: 57 Year
  Sex: Female

DRUGS (1)
  1. SUBOXONE [Suspect]
     Indication: PRODUCT USED FOR UNKNOWN INDICATION
     Dosage: SUBLINGUAL FILM; DOSING INFORMATION UNKNOWN
     Route: 065

REACTIONS (10)
  - OFF LABEL USE [None]
  - FATIGUE [None]
  - UNDERDOSE [None]
  - ABDOMINAL DISCOMFORT [None]
  - BREAST CANCER [None]
  - DRUG WITHDRAWAL SYNDROME [None]
  - PAIN [None]
  - ARTHRALGIA [None]
  - JOINT STIFFNESS [None]
  - FEELING HOT [None]
